FAERS Safety Report 14378579 (Version 1)
Quarter: 2018Q1

REPORT INFORMATION
  Report Type: Spontaneous
  Country: NL (occurrence: NL)
  Receive Date: 20180112
  Receipt Date: 20180112
  Transmission Date: 20180509
  Serious: Yes (Other)
  Sender: FDA-Public Use
  Company Number: NL-SUN PHARMACEUTICAL INDUSTRIES LTD-2018R1-159768

PATIENT
  Age: 43 Year
  Sex: Female

DRUGS (4)
  1. MAGNESIUM TABLETTEN [Concomitant]
     Indication: PRODUCT USED FOR UNKNOWN INDICATION
     Dosage: UNK
     Route: 065
  2. ISOTRETINOINE SUN 10 MG, ZACHTE CAPSULES [Suspect]
     Active Substance: ISOTRETINOIN
     Indication: ROSACEA
     Dosage: 1 X PER DAG 1 CAPS
     Route: 065
     Dates: start: 20171020, end: 20171023
  3. ORGAMETRIL 5 MGORGAMETRIL TABLET 5MG [Concomitant]
     Indication: PRODUCT USED FOR UNKNOWN INDICATION
     Dosage: 1 X DAAGS
     Route: 065
  4. QUETIAPINE. [Concomitant]
     Active Substance: QUETIAPINE
     Indication: PRODUCT USED FOR UNKNOWN INDICATION
     Dosage: 1 X DAAGS
     Route: 065

REACTIONS (5)
  - Condition aggravated [Recovered/Resolved]
  - Osteoarthritis [Recovered/Resolved]
  - Endometriosis [Recovered/Resolved]
  - Psoriasis [Recovered/Resolved]
  - Chronic fatigue syndrome [Recovering/Resolving]

NARRATIVE: CASE EVENT DATE: 20171020
